FAERS Safety Report 9536935 (Version 3)
Quarter: 2013Q4

REPORT INFORMATION
  Report Type: Spontaneous
  Country: US (occurrence: US)
  Receive Date: 20130919
  Receipt Date: 20131120
  Transmission Date: 20140711
  Serious: Yes (Other)
  Sender: FDA-Public Use
  Company Number: US-NOVOPROD-387217

PATIENT
  Age: 39 Year
  Sex: Male

DRUGS (1)
  1. NOVOLOG [Suspect]
     Indication: TYPE 1 DIABETES MELLITUS
     Dosage: UNK
     Route: 058
     Dates: start: 2000

REACTIONS (6)
  - Vomiting [Recovering/Resolving]
  - Dehydration [Recovering/Resolving]
  - Pain [Recovering/Resolving]
  - Chest discomfort [Recovering/Resolving]
  - Drug ineffective [Recovering/Resolving]
  - Blood glucose increased [Recovering/Resolving]
